FAERS Safety Report 11259040 (Version 1)
Quarter: 2015Q3

REPORT INFORMATION
  Report Type: Spontaneous
  Country: US (occurrence: None)
  Receive Date: 20150709
  Receipt Date: 20150709
  Transmission Date: 20151125
  Serious: No
  Sender: FDA-Public Use
  Company Number: None

PATIENT
  Age: 71 Year
  Sex: Male
  Weight: 68.95 kg

DRUGS (3)
  1. CENTRUM SILVER [Suspect]
     Active Substance: VITAMINS
     Indication: SUPPLEMENTATION THERAPY
     Route: 048
     Dates: start: 201504
  2. TAMULOSIN [Concomitant]
     Active Substance: TAMSULOSIN
  3. CALCIUM OSCAL [Concomitant]

REACTIONS (3)
  - Chromaturia [None]
  - Product quality issue [None]
  - Unevaluable event [None]

NARRATIVE: CASE EVENT DATE: 201504
